FAERS Safety Report 5702734-5 (Version None)
Quarter: 2008Q2

REPORT INFORMATION
  Report Type: 
  Country: None (occurrence: None)
  Receive Date: 20080411
  Receipt Date: 20080402
  Transmission Date: 20081010
  Serious: Yes (Hospitalization)
  Sender: FDA-Public Use
  Company Number: B0504909A

PATIENT
  Age: 75 Year
  Sex: Male

DRUGS (14)
  1. DEROXAT [Suspect]
     Dosage: 20MG PER DAY
     Route: 048
     Dates: start: 20070424, end: 20070430
  2. IMOVANE [Suspect]
     Indication: INSOMNIA
     Dosage: 3.75MG PER DAY
     Route: 048
     Dates: start: 20070422, end: 20070426
  3. NEXIUM [Concomitant]
     Dosage: 20MG PER DAY
     Route: 048
     Dates: end: 20070418
  4. WYTENS [Concomitant]
     Indication: HYPERTENSION
     Dosage: .4MG PER DAY
     Route: 048
     Dates: end: 20070418
  5. BISOPROLOL FUMARATE [Concomitant]
     Dosage: 5MG PER DAY
     Route: 048
     Dates: start: 20070421, end: 20070502
  6. ALLOPURINOL [Concomitant]
     Indication: GOUT
     Dosage: 100MG PER DAY
     Route: 048
     Dates: start: 20070424, end: 20070430
  7. ATORVASTATIN CALCIUM [Concomitant]
     Indication: DRUG USE FOR UNKNOWN INDICATION
     Dosage: 10MG PER DAY
     Route: 048
     Dates: start: 20070418, end: 20070511
  8. KARDEGIC [Concomitant]
     Indication: DRUG USE FOR UNKNOWN INDICATION
     Dosage: 160U PER DAY
     Route: 048
     Dates: start: 20070419, end: 20070502
  9. COLCHICINE [Concomitant]
     Indication: GOUT
     Dosage: 1MG PER DAY
     Route: 048
     Dates: end: 20070502
  10. INIPOMP [Concomitant]
     Indication: ULCER
     Dosage: 20U PER DAY
     Route: 048
     Dates: start: 20070418, end: 20070430
  11. TRIFLUCAN [Concomitant]
     Indication: DRUG USE FOR UNKNOWN INDICATION
     Dosage: 50MG PER DAY
     Route: 048
     Dates: start: 20070420, end: 20070430
  12. PHYSIOTENS [Concomitant]
     Indication: DRUG USE FOR UNKNOWN INDICATION
     Dosage: .4MG PER DAY
     Route: 048
     Dates: end: 20070418
  13. DIFFU-K [Concomitant]
     Indication: DRUG USE FOR UNKNOWN INDICATION
     Dosage: 1TAB PER DAY
     Route: 048
     Dates: start: 20070419, end: 20070430
  14. TRIATEC [Concomitant]
     Dosage: 1.25MG PER DAY
     Route: 048
     Dates: start: 20070423, end: 20070502

REACTIONS (5)
  - COMA [None]
  - DEPRESSED LEVEL OF CONSCIOUSNESS [None]
  - DISTURBANCE IN ATTENTION [None]
  - ELECTROENCEPHALOGRAM ABNORMAL [None]
  - SEDATION [None]
